FAERS Safety Report 12141114 (Version 1)
Quarter: 2016Q1

REPORT INFORMATION
  Report Type: Spontaneous
  Country: US (occurrence: None)
  Receive Date: 20160302
  Receipt Date: 20160302
  Transmission Date: 20160526
  Serious: Yes (Disabling)
  Sender: FDA-Public Use
  Company Number: None

PATIENT
  Age: 65 Year
  Sex: Female
  Weight: 88.45 kg

DRUGS (6)
  1. METOPROLOL TARTRATE. [Concomitant]
     Active Substance: METOPROLOL TARTRATE
  2. SIMVASTATIN. [Concomitant]
     Active Substance: SIMVASTATIN
  3. ASPIRIN. [Concomitant]
     Active Substance: ASPIRIN
  4. CENTRUM-SILVER T DAILY [Concomitant]
  5. LISINOPRIL 20 MG LUPIN PHRM -WALMART PHARMACY- [Suspect]
     Active Substance: LISINOPRIL
     Indication: HYPERTENSION
     Dosage: 20 MG 1 PILL ONCE DAILY MOUTH
     Route: 048
     Dates: start: 20151125, end: 20160129
  6. CETIRIZINE [Concomitant]
     Active Substance: CETIRIZINE HYDROCHLORIDE

REACTIONS (4)
  - Productive cough [None]
  - Sneezing [None]
  - Rhinorrhoea [None]
  - Sinusitis [None]

NARRATIVE: CASE EVENT DATE: 20151210
